FAERS Safety Report 20600583 (Version 1)
Quarter: 2022Q1

REPORT INFORMATION
  Report Type: Spontaneous
  Country: US (occurrence: US)
  Receive Date: 20220316
  Receipt Date: 20220316
  Transmission Date: 20220423
  Serious: Yes (Death)
  Sender: FDA-Public Use
  Company Number: US-MLMSERVICE-20220303-3412671-1

PATIENT
  Age: 65 Year
  Sex: Male

DRUGS (4)
  1. DEXAMETHASONE [Suspect]
     Active Substance: DEXAMETHASONE
     Indication: Philadelphia positive acute lymphocytic leukaemia
     Dosage: 2 CYCLES (HYPERCVAD)
     Route: 065
     Dates: start: 2014
  2. VINCRISTINE [Suspect]
     Active Substance: VINCRISTINE
     Indication: Philadelphia positive acute lymphocytic leukaemia
     Dosage: 2 CYCLES (HYPERCVAD)
     Route: 065
  3. CYCLOPHOSPHAMIDE [Suspect]
     Active Substance: CYCLOPHOSPHAMIDE
     Indication: Philadelphia positive acute lymphocytic leukaemia
     Dosage: 2 CYCLES (HYPERCVAD)
     Route: 065
  4. DOXORUBICIN [Suspect]
     Active Substance: DOXORUBICIN
     Indication: Philadelphia positive acute lymphocytic leukaemia
     Dosage: 2 CYCLES (HYPERCVAD)
     Route: 065

REACTIONS (4)
  - Pneumonia [Fatal]
  - Pulmonary cavitation [Fatal]
  - Neurotoxicity [Fatal]
  - Enteritis [Fatal]

NARRATIVE: CASE EVENT DATE: 20140101
